FAERS Safety Report 8324630-X (Version None)
Quarter: 2012Q2

REPORT INFORMATION
  Report Type: 
  Country: None (occurrence: None)
  Receive Date: 20120501
  Receipt Date: 20120423
  Transmission Date: 20120825
  Serious: Yes (Hospitalization, Other)
  Sender: FDA-Public Use
  Company Number: US-UCBSA-055934

PATIENT
  Age: 55 Year
  Sex: Female

DRUGS (12)
  1. VITAMIN B COMPLEX CAP [Concomitant]
  2. ERGOCALCIFEROL [Concomitant]
  3. VITATIN [Concomitant]
  4. SULFADIMIDINE [Concomitant]
  5. CIMZIA [Suspect]
     Indication: CROHN'S DISEASE
  6. LISINOPRIL [Concomitant]
  7. LOPERAMIDE HCL [Concomitant]
  8. HEMHART [Concomitant]
  9. ZOLPIDEM TARTRATE [Concomitant]
  10. METHYLCELLULOSE [Concomitant]
  11. HUMIRA [Suspect]
     Indication: CROHN'S DISEASE
     Dosage: DOSE-UNK(40 MG)
     Dates: start: 20081001, end: 20091101
  12. ESCITALOPRAM OXALATE [Concomitant]

REACTIONS (6)
  - BACK PAIN [None]
  - PNEUMONIA [None]
  - DIARRHOEA [None]
  - OSTEOARTHRITIS [None]
  - COLON DYSPLASIA [None]
  - IRRITABLE BOWEL SYNDROME [None]
